FAERS Safety Report 13380655 (Version 1)
Quarter: 2017Q1

REPORT INFORMATION
  Report Type: Spontaneous
  Country: US (occurrence: US)
  Receive Date: 20170328
  Receipt Date: 20170328
  Transmission Date: 20170429
  Serious: No
  Sender: FDA-Public Use
  Company Number: None

PATIENT
  Age: 61 Year
  Sex: Female

DRUGS (9)
  1. ZYRTEC [Suspect]
     Active Substance: CETIRIZINE HYDROCHLORIDE
     Indication: VOCAL CORD DISORDER
     Dosage: ?          QUANTITY:1 TABLET(S);?
  2. ADVAIR HFA [Concomitant]
     Active Substance: FLUTICASONE PROPIONATE\SALMETEROL XINAFOATE
  3. DONNATOL [Concomitant]
  4. ATIVAN [Concomitant]
     Active Substance: LORAZEPAM
  5. MULTIVITAMIN [Concomitant]
     Active Substance: VITAMINS
  6. ZYRTEC [Suspect]
     Active Substance: CETIRIZINE HYDROCHLORIDE
     Indication: RHINORRHOEA
     Dosage: ?          QUANTITY:1 TABLET(S);?
  7. FLURZEPAM [Concomitant]
  8. CHINESE HERBS [Concomitant]
     Active Substance: HERBALS
  9. VITAMIN D3 [Concomitant]
     Active Substance: CHOLECALCIFEROL

REACTIONS (2)
  - Incontinence [None]
  - Gastrooesophageal reflux disease [None]

NARRATIVE: CASE EVENT DATE: 20140326
